FAERS Safety Report 25740049 (Version 1)
Quarter: 2025Q3

REPORT INFORMATION
  Report Type: Spontaneous
  Country: IN (occurrence: IN)
  Receive Date: 20250829
  Receipt Date: 20250829
  Transmission Date: 20251021
  Serious: Yes (Hospitalization, Other)
  Sender: MYLAN
  Company Number: IN-MYLANLABS-2025M1073598

PATIENT
  Age: 46 Year
  Sex: Male

DRUGS (20)
  1. TRAMADOL [Suspect]
     Active Substance: TRAMADOL
     Indication: Product used for unknown indication
  2. TRAMADOL [Suspect]
     Active Substance: TRAMADOL
  3. TRAMADOL [Suspect]
     Active Substance: TRAMADOL
     Route: 048
  4. TRAMADOL [Suspect]
     Active Substance: TRAMADOL
     Route: 048
  5. TRAMADOL [Suspect]
     Active Substance: TRAMADOL
     Dosage: UNK, QD (15-20 TABLETS PER DAY WITH AN AVERAGE DOSE APPROXIMATELY 1750 MG)
  6. TRAMADOL [Suspect]
     Active Substance: TRAMADOL
     Dosage: UNK, QD (15-20 TABLETS PER DAY WITH AN AVERAGE DOSE APPROXIMATELY 1750 MG)
  7. TRAMADOL [Suspect]
     Active Substance: TRAMADOL
     Dosage: UNK, QD (15-20 TABLETS PER DAY WITH AN AVERAGE DOSE APPROXIMATELY 1750 MG)
     Route: 048
  8. TRAMADOL [Suspect]
     Active Substance: TRAMADOL
     Dosage: UNK, QD (15-20 TABLETS PER DAY WITH AN AVERAGE DOSE APPROXIMATELY 1750 MG)
     Route: 048
  9. PREGABALIN [Suspect]
     Active Substance: PREGABALIN
     Indication: Generalised tonic-clonic seizure
  10. PREGABALIN [Suspect]
     Active Substance: PREGABALIN
     Route: 048
  11. PREGABALIN [Suspect]
     Active Substance: PREGABALIN
     Route: 048
  12. PREGABALIN [Suspect]
     Active Substance: PREGABALIN
  13. PREGABALIN [Suspect]
     Active Substance: PREGABALIN
     Dosage: 30000 MILLIGRAM, QD (100 CAPSULES DAILY)
  14. PREGABALIN [Suspect]
     Active Substance: PREGABALIN
     Dosage: 30000 MILLIGRAM, QD (100 CAPSULES DAILY)
     Route: 048
  15. PREGABALIN [Suspect]
     Active Substance: PREGABALIN
     Dosage: 30000 MILLIGRAM, QD (100 CAPSULES DAILY)
  16. PREGABALIN [Suspect]
     Active Substance: PREGABALIN
     Dosage: 30000 MILLIGRAM, QD (100 CAPSULES DAILY)
     Route: 048
  17. PREGABALIN [Suspect]
     Active Substance: PREGABALIN
     Route: 048
  18. PREGABALIN [Suspect]
     Active Substance: PREGABALIN
     Route: 048
  19. PREGABALIN [Suspect]
     Active Substance: PREGABALIN
  20. PREGABALIN [Suspect]
     Active Substance: PREGABALIN

REACTIONS (17)
  - Drug tolerance [Recovering/Resolving]
  - Generalised tonic-clonic seizure [Recovering/Resolving]
  - Loss of consciousness [Recovered/Resolved]
  - Intentional overdose [Recovering/Resolving]
  - Drug dependence [Recovering/Resolving]
  - Weight increased [Recovering/Resolving]
  - Generalised oedema [Recovering/Resolving]
  - Intentional product misuse [Recovering/Resolving]
  - Withdrawal syndrome [Recovering/Resolving]
  - Irritability [Recovering/Resolving]
  - Headache [Recovering/Resolving]
  - Asthenia [Recovering/Resolving]
  - Hypoaesthesia [Recovering/Resolving]
  - Gastrointestinal disorder [Recovering/Resolving]
  - Dyspnoea [Recovering/Resolving]
  - Confusional state [Recovering/Resolving]
  - Foaming at mouth [Recovered/Resolved]
